FAERS Safety Report 7420809-X (Version None)
Quarter: 2011Q2

REPORT INFORMATION
  Report Type: 
  Country: None (occurrence: None)
  Receive Date: 20110418
  Receipt Date: 20110411
  Transmission Date: 20111010
  Serious: Yes (Other)
  Sender: FDA-Public Use
  Company Number: US-US-EMD SERONO, INC.-230048J09USA

PATIENT
  Sex: Female

DRUGS (3)
  1. REBIF [Suspect]
     Indication: MULTIPLE SCLEROSIS
     Route: 065
     Dates: start: 20071220, end: 20080625
  2. REBIF [Suspect]
     Route: 058
     Dates: start: 20090327, end: 20091201
  3. IMMUNE GLOBULIN INTRAVENOUS (HUMAN) [Concomitant]
     Route: 042

REACTIONS (4)
  - SCAR [None]
  - VARICOSE VEIN [None]
  - HYPERHIDROSIS [None]
  - ARTERIAL OCCLUSIVE DISEASE [None]
